FAERS Safety Report 6858077-X (Version None)
Quarter: 2010Q3

REPORT INFORMATION
  Report Type: 
  Country: None (occurrence: None)
  Receive Date: 20100719
  Receipt Date: 20080620
  Transmission Date: 20110219
  Serious: Yes (Other)
  Sender: FDA-Public Use
  Company Number: US-PFIZER INC-2008009872

PATIENT
  Sex: Female

DRUGS (7)
  1. CHANTIX [Interacting]
     Dates: start: 20071101
  2. PERCOCET [Interacting]
     Indication: ANALGESIC THERAPY
  3. DARVOCET [Interacting]
     Indication: ANALGESIC THERAPY
  4. VICODIN [Interacting]
     Indication: ANALGESIC THERAPY
  5. IBUPROFEN [Suspect]
     Indication: ANALGESIC THERAPY
  6. FLEXERIL [Suspect]
     Indication: ANALGESIC THERAPY
  7. TYLENOL PM [Concomitant]

REACTIONS (5)
  - ARTIFICIAL CROWN PROCEDURE [None]
  - DRUG INTERACTION [None]
  - ENDODONTIC PROCEDURE [None]
  - PROCEDURAL COMPLICATION [None]
  - TOOTHACHE [None]
